FAERS Safety Report 5070697-4 (Version None)
Quarter: 2006Q3

REPORT INFORMATION
  Report Type: 
  Country: None (occurrence: None)
  Receive Date: 20060804
  Receipt Date: 20050929
  Transmission Date: 20061208
  Serious: No
  Sender: FDA-Public Use
  Company Number: US-GLAXOSMITHKLINE-A0576518A

PATIENT
  Age: 37 Year
  Sex: Male

DRUGS (2)
  1. NICORETTE (MINT) [Suspect]
  2. COMMIT [Suspect]

REACTIONS (3)
  - DIARRHOEA [None]
  - DYSPEPSIA [None]
  - OESOPHAGEAL PAIN [None]
